FAERS Safety Report 8257396-2 (Version None)
Quarter: 2012Q1

REPORT INFORMATION
  Report Type: 
  Country: None (occurrence: None)
  Receive Date: 20120330
  Receipt Date: 20120330
  Transmission Date: 20120608
  Serious: Yes (Life-Threatening, Hospitalization, Disabling, Other)
  Sender: FDA-Public Use
  Company Number: None

PATIENT
  Sex: Male
  Weight: 77.1115 kg

DRUGS (4)
  1. DILTIAZEM [Suspect]
     Dosage: 2 A DAY
     Dates: start: 20111101, end: 20120105
  2. CEPHALEXIN [Concomitant]
  3. LEVETIRACETAM [Suspect]
     Indication: CONVULSION
     Dosage: 1 A DAY
     Dates: start: 20120117, end: 20120124
  4. ENALAPRIL MALEATE [Concomitant]

REACTIONS (5)
  - INFLUENZA LIKE ILLNESS [None]
  - MEDICAL DEVICE COMPLICATION [None]
  - HAEMORRHAGE [None]
  - PRODUCT CONTAMINATION [None]
  - PRURITUS [None]
